FAERS Safety Report 7267108-7 (Version None)
Quarter: 2011Q1

REPORT INFORMATION
  Report Type: 
  Country: None (occurrence: None)
  Receive Date: 20110201
  Receipt Date: 20110121
  Transmission Date: 20110831
  Serious: Yes (Hospitalization, Other)
  Sender: FDA-Public Use
  Company Number: PHHO2009DE11947

PATIENT
  Sex: Female
  Weight: 49 kg

DRUGS (4)
  1. MYFORTIC [Concomitant]
     Indication: RENAL TRANSPLANT
     Dosage: UNK
     Dates: start: 20090425
  2. URBASON [Concomitant]
     Dosage: UNK
     Dates: start: 20090425
  3. EVEROLIMUS [Suspect]
     Indication: RENAL TRANSPLANT
     Dosage: 0.75MG/2-0-2
     Route: 048
     Dates: start: 20090728, end: 20090922
  4. PROGRAF [Concomitant]
     Indication: RENAL TRANSPLANT
     Dosage: UNK
     Dates: start: 20090921

REACTIONS (10)
  - THROMBOSIS IN DEVICE [None]
  - CD4 LYMPHOCYTES ABNORMAL [None]
  - ENTEROCOCCAL INFECTION [None]
  - BLOOD CREATININE INCREASED [None]
  - DRUG INEFFECTIVE [None]
  - URETHRAL STENT INSERTION [None]
  - THROMBECTOMY [None]
  - URINARY TRACT INFECTION [None]
  - URINARY TRACT OBSTRUCTION [None]
  - KIDNEY TRANSPLANT REJECTION [None]
